FAERS Safety Report 7347171-5 (Version None)
Quarter: 2011Q1

REPORT INFORMATION
  Report Type: 
  Country: None (occurrence: None)
  Receive Date: 20110311
  Receipt Date: 20110309
  Transmission Date: 20110831
  Serious: Yes (Other)
  Sender: FDA-Public Use
  Company Number: BR-PFIZER INC-2011001196

PATIENT
  Age: 72 Year
  Sex: Female
  Weight: 51 kg

DRUGS (5)
  1. SUPRADIN [Concomitant]
     Dosage: UNK
  2. CHAMPIX [Suspect]
     Dosage: 1 TABLET AT NIGHT
     Route: 048
  3. ACETYLCYSTEINE [Concomitant]
     Indication: NASOPHARYNGITIS
     Dosage: UNK
  4. CHAMPIX [Suspect]
     Indication: TOBACCO USER
     Dosage: UNK
     Route: 048
     Dates: start: 20101209
  5. ARCALION [Concomitant]
     Dosage: UNK

REACTIONS (1)
  - BLOOD PRESSURE DECREASED [None]
